FAERS Safety Report 10239336 (Version 1)
Quarter: 2014Q2

REPORT INFORMATION
  Report Type: Spontaneous
  Country: US (occurrence: US)
  Receive Date: 20140616
  Receipt Date: 20140616
  Transmission Date: 20141212
  Serious: Yes (Other)
  Sender: FDA-Public Use
  Company Number: US-PFIZER INC-2014162107

PATIENT
  Age: 52 Year
  Sex: Male
  Weight: 111 kg

DRUGS (4)
  1. LYRICA [Suspect]
     Indication: PAIN IN EXTREMITY
     Dosage: 100 MG, 2X/DAY
     Route: 048
     Dates: start: 2013
  2. LYRICA [Suspect]
     Indication: FIBROMYALGIA
  3. SPIRIVA [Concomitant]
     Indication: CHRONIC OBSTRUCTIVE PULMONARY DISEASE
     Dosage: UNK
  4. CYMBALTA [Concomitant]
     Dosage: UNK

REACTIONS (3)
  - Limb deformity [Unknown]
  - Peripheral vascular disorder [Unknown]
  - Limb discomfort [Unknown]
